FAERS Safety Report 14335434 (Version 2)
Quarter: 2018Q1

REPORT INFORMATION
  Report Type: Report from Study
  Country: GB (occurrence: GB)
  Receive Date: 20171229
  Receipt Date: 20180319
  Transmission Date: 20180509
  Serious: Yes (Hospitalization)
  Sender: FDA-Public Use
  Company Number: GB-ROCHE-1882050

PATIENT
  Sex: Female

DRUGS (2)
  1. ROACTEMRA [Suspect]
     Active Substance: TOCILIZUMAB
     Indication: RHEUMATOID ARTHRITIS
     Route: 058
     Dates: start: 20161206, end: 20171214
  2. ROACTEMRA [Suspect]
     Active Substance: TOCILIZUMAB
     Route: 058
     Dates: start: 20160714

REACTIONS (6)
  - Lower respiratory tract infection [Unknown]
  - Neutropenic sepsis [Recovered/Resolved]
  - Nasopharyngitis [Unknown]
  - Ear pain [Unknown]
  - White blood cell count decreased [Unknown]
  - Joint swelling [Unknown]

NARRATIVE: CASE EVENT DATE: 20171214
